FAERS Safety Report 6553576-2 (Version None)
Quarter: 2010Q1

REPORT INFORMATION
  Report Type: 
  Country: None (occurrence: None)
  Receive Date: 20100122
  Receipt Date: 20100116
  Transmission Date: 20100710
  Serious: Yes (Hospitalization)
  Sender: FDA-Public Use
  Company Number: 2010SP000207

PATIENT
  Age: 44 Year
  Sex: Male

DRUGS (2)
  1. PEG-INTRON [Suspect]
     Indication: HEPATITIS C
     Dosage: ; SC
     Route: 058
     Dates: start: 20090630
  2. RIBAVIRIN [Suspect]
     Indication: HEPATITIS C
     Dosage: ; PO
     Route: 048
     Dates: start: 20090630

REACTIONS (6)
  - BRAIN OEDEMA [None]
  - ENCEPHALITIS VIRAL [None]
  - FATIGUE [None]
  - HALLUCINATION [None]
  - PNEUMONIA [None]
  - PYREXIA [None]
